FAERS Safety Report 12068010 (Version 1)
Quarter: 2016Q1

REPORT INFORMATION
  Report Type: Spontaneous
  Country: US (occurrence: US)
  Receive Date: 20160211
  Receipt Date: 20160211
  Transmission Date: 20160526
  Serious: No
  Sender: FDA-Public Use
  Company Number: US-SMITH AND NEPHEW, INC-2015SMT00231

PATIENT
  Age: 57 Year
  Sex: Male
  Weight: 119.27 kg

DRUGS (7)
  1. LISINOPRIL. [Concomitant]
     Active Substance: LISINOPRIL
     Dosage: 20 MG, 1X/DAY
     Dates: start: 2006
  2. VICTOZA [Concomitant]
     Active Substance: LIRAGLUTIDE
     Dosage: 1.8 MG, 1X/DAY
     Dates: start: 2006
  3. REGRANEX [Suspect]
     Active Substance: BECAPLERMIN
     Indication: WOUND
     Dosage: 0.01 %, 1X/DAY
     Route: 061
     Dates: start: 20150714, end: 20150728
  4. GLIMEPRIDE [Concomitant]
     Active Substance: GLIMEPIRIDE
     Dosage: 2 MG, 1X/DAY
     Dates: start: 2006
  5. INVOKANA [Concomitant]
     Active Substance: CANAGLIFLOZIN
     Dosage: 300 MG, 1X/DAY
     Dates: start: 2006
  6. METFORMIN [Concomitant]
     Active Substance: METFORMIN HYDROCHLORIDE
     Dosage: 1000 MG, 1X/DAY
     Dates: start: 2006
  7. AMLODIPINE [Concomitant]
     Active Substance: AMLODIPINE BESYLATE
     Dosage: 10 MG, 1X/DAY
     Dates: start: 2006

REACTIONS (5)
  - Application site haemorrhage [Unknown]
  - Application site infection [Unknown]
  - Wound complication [Unknown]
  - Purulent discharge [Unknown]
  - Application site erythema [Unknown]

NARRATIVE: CASE EVENT DATE: 20150715
